FAERS Safety Report 18823384 (Version 2)
Quarter: 2021Q1

REPORT INFORMATION
  Report Type: Spontaneous
  Country: US (occurrence: US)
  Receive Date: 20210202
  Receipt Date: 20210217
  Transmission Date: 20210419
  Serious: Yes (Other)
  Sender: FDA-Public Use
  Company Number: US-AMERICAN REGENT INC-2021000300

PATIENT
  Age: 46 Year
  Sex: Female
  Weight: 83.5 kg

DRUGS (5)
  1. OMEPRAZOLE. [Concomitant]
     Active Substance: OMEPRAZOLE
     Indication: ANTACID THERAPY
     Dosage: 40 MILLIGRAM, QD BEFORE BREAKFAST
     Route: 048
  2. XARELTO [Concomitant]
     Active Substance: RIVAROXABAN
     Indication: ANTICOAGULANT THERAPY
     Dosage: 15 MILLIGRAM, BID
     Route: 065
  3. INJECTAFER [Suspect]
     Active Substance: FERRIC CARBOXYMALTOSE
     Indication: IRON DEFICIENCY ANAEMIA
     Dosage: 750 MG IN NS 115 ML, ONCE AT 345 ML/HR
     Route: 042
     Dates: start: 20201203, end: 20201203
  4. INJECTAFER [Suspect]
     Active Substance: FERRIC CARBOXYMALTOSE
     Dosage: 750 MG IN NS 115 ML, ONCE AT 345 ML/HR
     Route: 042
     Dates: start: 20201210, end: 20201210
  5. BISOPROLOL [Concomitant]
     Active Substance: BISOPROLOL
     Indication: ILL-DEFINED DISORDER
     Dosage: REPORTED AS 5 MG AND 2.5 MG DAILY
     Route: 048

REACTIONS (3)
  - Blood phosphorus decreased [Recovered/Resolved]
  - Feeling abnormal [Unknown]
  - Arthralgia [Unknown]

NARRATIVE: CASE EVENT DATE: 202012
